FAERS Safety Report 7484794-7 (Version None)
Quarter: 2011Q2

REPORT INFORMATION
  Report Type: 
  Country: None (occurrence: None)
  Receive Date: 20110505
  Receipt Date: 20110425
  Transmission Date: 20111010
  Serious: Yes (Other)
  Sender: FDA-Public Use
  Company Number: THYM-1000001

PATIENT
  Age: 35 Year
  Sex: Male
  Weight: 68.6 kg

DRUGS (8)
  1. THYMOGLOBULIN [Suspect]
  2. MEPERIDINE HCL [Concomitant]
  3. THYMOGLOBULIN [Suspect]
     Indication: PROPHYLAXIS AGAINST TRANSPLANT REJECTION
     Dosage: 0.5 MG/KG, ONCE, 2MG/KG, QD,  INTRAVENOUS
     Route: 042
     Dates: start: 20071213, end: 20071213
  4. THYMOGLOBULIN [Suspect]
     Indication: PROPHYLAXIS AGAINST TRANSPLANT REJECTION
     Dosage: 0.5 MG/KG, ONCE, 2MG/KG, QD,  INTRAVENOUS
     Route: 042
     Dates: start: 20071214, end: 20071216
  5. CALCIUM CARBONATE [Concomitant]
  6. ACETAMINOPHEN [Concomitant]
  7. VERSED [Concomitant]
  8. HYDROMORPHONE (HYDROMORPHONE) [Concomitant]

REACTIONS (6)
  - WHITE BLOOD CELL COUNT DECREASED [None]
  - HYPOPHAGIA [None]
  - CYTOKINE RELEASE SYNDROME [None]
  - CD4 LYMPHOCYTES DECREASED [None]
  - SERUM SICKNESS [None]
  - LYMPHOPENIA [None]
